FAERS Safety Report 5032258-2 (Version None)
Quarter: 2006Q2

REPORT INFORMATION
  Report Type: 
  Country: None (occurrence: None)
  Receive Date: 20060619
  Receipt Date: 20060602
  Transmission Date: 20061013
  Serious: Yes (Hospitalization, Other)
  Sender: FDA-Public Use
  Company Number: US200605004195

PATIENT
  Age: 55 Year
  Sex: Female

DRUGS (5)
  1. GEMZAR [Suspect]
     Indication: BREAST CANCER STAGE IV
     Dosage: 50 MG, INTRAVENOUS
     Route: 042
     Dates: start: 20050901
  2. TAXOTERE [Concomitant]
  3. EFFEXOR [Concomitant]
  4. PERCOCET [Concomitant]
  5. LORAZEPAM [Concomitant]

REACTIONS (1)
  - COLITIS [None]
